FAERS Safety Report 10450658 (Version 3)
Quarter: 2014Q4

REPORT INFORMATION
  Report Type: Spontaneous
  Country: US (occurrence: US)
  Receive Date: 20140912
  Receipt Date: 20141106
  Transmission Date: 20150528
  Serious: Yes (Other)
  Sender: FDA-Public Use
  Company Number: US-PERRIGO-14US008567

PATIENT
  Age: 25 Year
  Sex: Female
  Weight: 56.69 kg

DRUGS (2)
  1. MICONAZOLE NITRATE COMBO PACK 214/070 4% 982 [Suspect]
     Active Substance: MICONAZOLE NITRATE
     Indication: VULVOVAGINAL MYCOTIC INFECTION
     Dosage: ONE APPLICATION
     Route: 067
     Dates: start: 20140824, end: 20140824
  2. MICONAZOLE NITRATE COMBO PACK 214/070 2% 982 [Suspect]
     Active Substance: MICONAZOLE NITRATE
     Indication: VULVOVAGINAL MYCOTIC INFECTION
     Dosage: AS DIRECTED AT BEDTIME, SINGLE
     Route: 067
     Dates: start: 20140824, end: 20140824

REACTIONS (7)
  - Vaginal inflammation [Unknown]
  - Vulvovaginal pain [Recovering/Resolving]
  - Vulvovaginal pruritus [Unknown]
  - Erythema [Unknown]
  - Dysuria [Unknown]
  - Vulvovaginal discomfort [Recovering/Resolving]
  - Vulvovaginal swelling [Recovering/Resolving]

NARRATIVE: CASE EVENT DATE: 20140824
